FAERS Safety Report 5143536-0 (Version None)
Quarter: 2006Q4

REPORT INFORMATION
  Report Type: 
  Country: None (occurrence: None)
  Receive Date: 20061103
  Receipt Date: 20061031
  Transmission Date: 20070319
  Serious: Yes (Death, Hospitalization)
  Sender: FDA-Public Use
  Company Number: GB-SANOFI-SYNTHELABO-F01200602231

PATIENT
  Sex: Male
  Weight: 52 kg

DRUGS (3)
  1. FOLINIC ACID [Suspect]
  2. FLUOROURACIL [Suspect]
     Dosage: 635 MG BOLUS FOLLOWED BY A 46 HOUR INFUSION OF 3815 MG
     Route: 041
     Dates: start: 20060914, end: 20060915
  3. OXALIPLATIN [Suspect]
     Indication: COLORECTAL CANCER METASTATIC
     Dosage: 135 MG
     Route: 041
     Dates: start: 20060914, end: 20060914

REACTIONS (3)
  - ABDOMINAL PAIN [None]
  - HAEMATEMESIS [None]
  - ILEUS [None]
